FAERS Safety Report 6525496-0 (Version None)
Quarter: 2010Q1

REPORT INFORMATION
  Report Type: 
  Country: None (occurrence: None)
  Receive Date: 20100104
  Receipt Date: 20091221
  Transmission Date: 20100710
  Serious: Yes (Other)
  Sender: FDA-Public Use
  Company Number: DK-PFIZER INC-2009312887

PATIENT
  Age: 66 Year
  Sex: Male

DRUGS (3)
  1. LYRICA [Suspect]
     Indication: GENERALISED ANXIETY DISORDER
     Dosage: 25 MG, 3X/DAY
     Dates: start: 20091214
  2. OXAZEPAM [Concomitant]
     Dosage: 7.5 MG, 3X/DAY
  3. STILNOCT [Concomitant]
     Dosage: 10 MG, 1X/DAY

REACTIONS (5)
  - ARRHYTHMIA [None]
  - CHEST PAIN [None]
  - GENITAL RASH [None]
  - HEADACHE [None]
  - RASH [None]
